FAERS Safety Report 21737256 (Version 2)
Quarter: 2022Q4

REPORT INFORMATION
  Report Type: Spontaneous
  Country: FR (occurrence: FR)
  Receive Date: 20221216
  Receipt Date: 20221223
  Transmission Date: 20230113
  Serious: Yes (Other)
  Sender: FDA-Public Use
  Company Number: FR-SUN PHARMACEUTICAL INDUSTRIES LTD-2022R1-368339

PATIENT
  Age: 75 Year
  Sex: Male

DRUGS (8)
  1. GEMCITABINE [Suspect]
     Active Substance: GEMCITABINE
     Indication: Chemotherapy
     Dosage: 1800 MILLIGRAM
     Route: 065
  2. WARFARIN [Interacting]
     Active Substance: WARFARIN
     Indication: Atrial fibrillation
     Dosage: 5 MILLIGRAM, DAILY IN THE EVENING
     Route: 065
  3. VISCUM ALBUM FRUITING TOP [Suspect]
     Active Substance: VISCUM ALBUM FRUITING TOP
     Indication: Product used for unknown indication
     Dosage: 10 MILLIGRAM/DAY 0
     Route: 058
  4. VISCUM ALBUM FRUITING TOP [Suspect]
     Active Substance: VISCUM ALBUM FRUITING TOP
     Dosage: 10 MILLIGRAM/DAY 2
     Route: 058
  5. PACLITAXEL [Suspect]
     Active Substance: PACLITAXEL
     Indication: Chemotherapy
     Dosage: 230 MILLIGRAM
     Route: 065
  6. ASPIRIN DL-LYSINE [Concomitant]
     Active Substance: ASPIRIN DL-LYSINE
     Indication: Myocardial ischaemia
     Dosage: 75 MILLIGRAM, DAILY AT LUNCHTIME
     Route: 065
  7. AMIODARONE [Concomitant]
     Active Substance: AMIODARONE
     Indication: Arrhythmia supraventricular
     Dosage: 200 MILLIGRAM, DAILY IN THE MORNING
     Route: 065
  8. BISOPROLOL [Concomitant]
     Active Substance: BISOPROLOL
     Indication: Arrhythmia supraventricular
     Dosage: 5 MILLIGRAM, DAILY IN THE MORNING
     Route: 065

REACTIONS (4)
  - Overdose [Unknown]
  - Drug interaction [Unknown]
  - Gastrointestinal haemorrhage [Unknown]
  - Anaemia [Unknown]
